FAERS Safety Report 5858417-4 (Version None)
Quarter: 2008Q3

REPORT INFORMATION
  Report Type: 
  Country: None (occurrence: None)
  Receive Date: 20080826
  Receipt Date: 20080815
  Transmission Date: 20090109
  Serious: Yes (Other)
  Sender: FDA-Public Use
  Company Number: US-ROCHE-534442

PATIENT
  Sex: Female
  Weight: 55.8 kg

DRUGS (5)
  1. BONIVA [Suspect]
     Indication: OSTEOPOROSIS
     Route: 048
     Dates: start: 20071201, end: 20080101
  2. TOPROL-XL [Concomitant]
     Dosage: PATIENT HAD BEEN RECEIVING THERAPY FOR A YEAR.
  3. ALTACE [Concomitant]
  4. PROTONIX [Concomitant]
  5. SYNTHROID [Concomitant]

REACTIONS (7)
  - BLOOD PRESSURE INCREASED [None]
  - DIARRHOEA [None]
  - FALL [None]
  - INTRACRANIAL ANEURYSM [None]
  - LOSS OF CONSCIOUSNESS [None]
  - MUSCLE SPASMS [None]
  - NASAL CONGESTION [None]
